FAERS Safety Report 7646404-5 (Version None)
Quarter: 2011Q3

REPORT INFORMATION
  Report Type: 
  Country: None (occurrence: None)
  Receive Date: 20110801
  Receipt Date: 20110722
  Transmission Date: 20111222
  Serious: Yes (Other)
  Sender: FDA-Public Use
  Company Number: FR-JNJFOC-20110710331

PATIENT
  Age: 57 Year
  Sex: Female

DRUGS (5)
  1. MORPHINE [Concomitant]
     Indication: PRODUCT USED FOR UNKNOWN INDICATION
     Route: 065
  2. HALDOL [Suspect]
     Indication: VOMITING
     Route: 065
  3. HALDOL [Suspect]
     Indication: PALLIATIVE CARE
     Route: 042
  4. HALDOL [Suspect]
     Indication: PALLIATIVE CARE
     Route: 065
  5. HALDOL [Suspect]
     Indication: VOMITING
     Route: 042

REACTIONS (4)
  - INCORRECT ROUTE OF DRUG ADMINISTRATION [None]
  - APNOEA [None]
  - OFF LABEL USE [None]
  - DRUG ADMINISTRATION ERROR [None]
